FAERS Safety Report 24686054 (Version 1)
Quarter: 2024Q4

REPORT INFORMATION
  Report Type: Spontaneous
  Country: US (occurrence: None)
  Receive Date: 20241130
  Receipt Date: 20241130
  Transmission Date: 20250114
  Serious: Yes (Hospitalization)
  Sender: Public
  Company Number: None

PATIENT
  Age: 87 Year
  Sex: Male

DRUGS (1)
  1. SPRYCEL [Suspect]
     Active Substance: DASATINIB
     Indication: Chronic myeloid leukaemia
     Dosage: FREQUENCY : DAILY;?
     Dates: start: 20241031

REACTIONS (1)
  - Pulmonary oedema [None]

NARRATIVE: CASE EVENT DATE: 20241128
